FAERS Safety Report 25820645 (Version 1)
Quarter: 2025Q3

REPORT INFORMATION
  Report Type: Spontaneous
  Country: BR (occurrence: BR)
  Receive Date: 20250919
  Receipt Date: 20250919
  Transmission Date: 20251021
  Serious: Yes (Death)
  Sender: ROCHE
  Company Number: BR-ROCHE-10000389001

PATIENT
  Age: 78 Year
  Sex: Male

DRUGS (2)
  1. ATEZOLIZUMAB [Suspect]
     Active Substance: ATEZOLIZUMAB
     Indication: Hepatocellular carcinoma
     Route: 065
     Dates: start: 20240202, end: 20250110
  2. BEVACIZUMAB [Suspect]
     Active Substance: BEVACIZUMAB
     Indication: Hepatocellular carcinoma
     Route: 065
     Dates: start: 20240202, end: 20250110

REACTIONS (2)
  - Disease progression [Fatal]
  - Hepatic failure [Fatal]

NARRATIVE: CASE EVENT DATE: 20250101
